APPROVED DRUG PRODUCT: LITHONATE
Active Ingredient: LITHIUM CITRATE
Strength: EQ 300MG CARBONATE/5ML
Dosage Form/Route: SYRUP;ORAL
Application: N017672 | Product #001
Applicant: SOLVAY PHARMACEUTICALS
Approved: Approved Prior to Jan 1, 1982 | RLD: No | RS: No | Type: DISCN